FAERS Safety Report 5325561-X (Version None)
Quarter: 2007Q2

REPORT INFORMATION
  Report Type: 
  Country: None (occurrence: None)
  Receive Date: 20070515
  Receipt Date: 20070509
  Transmission Date: 20071010
  Serious: Yes (Other)
  Sender: FDA-Public Use
  Company Number: GR-BOEHRINGER INGELHEIM PHARMACEUTICALS, INC.-2007-DE-02803GB

PATIENT
  Age: 81 Year
  Sex: Female

DRUGS (11)
  1. ATROVENT [Suspect]
     Indication: CARDIAC FAILURE
     Dosage: STRENGTH: 500/2 MCG/ML
     Route: 055
     Dates: start: 20070508, end: 20070509
  2. ATROVENT [Suspect]
     Indication: RESPIRATORY TRACT INFECTION
  3. ATROVENT [Suspect]
     Indication: CHRONIC OBSTRUCTIVE PULMONARY DISEASE
  4. ATROVENT [Suspect]
     Indication: DYSPNOEA
  5. NITROLINGUAL [Concomitant]
  6. DIGOXIN [Concomitant]
  7. LASIX [Concomitant]
  8. PULMICORT [Concomitant]
  9. NEURONTIN [Concomitant]
  10. ZITHROMAX [Concomitant]
  11. ZYLAPOUR [Concomitant]

REACTIONS (4)
  - COUGH [None]
  - DISCOMFORT [None]
  - DYSPNOEA [None]
  - TREMOR [None]
